FAERS Safety Report 8061982-2 (Version None)
Quarter: 2012Q1

REPORT INFORMATION
  Report Type: 
  Country: None (occurrence: None)
  Receive Date: 20120123
  Receipt Date: 20120111
  Transmission Date: 20120608
  Serious: Yes (Other)
  Sender: FDA-Public Use
  Company Number: US-BAYER-2011-092698

PATIENT
  Age: 34 Year
  Sex: Female
  Weight: 77.098 kg

DRUGS (8)
  1. IBUPROFEN (ADVIL) [Concomitant]
     Indication: DYSMENORRHOEA
     Dosage: 200 MG,  2 TIMES MONTHLY
     Route: 048
  2. DONNATAL [Concomitant]
  3. YAZ [Suspect]
     Indication: CONTRACEPTION
     Dosage: UNK
     Dates: start: 20070401, end: 20090801
  4. MYLANTA [Concomitant]
  5. BALZIVA [Concomitant]
     Dosage: UNK
     Dates: end: 20101026
  6. AVIANE-28 [Concomitant]
  7. MOTRIN [Concomitant]
     Indication: LIGAMENT SPRAIN
     Dosage: 600 MG, QD
  8. BALEIVA [Concomitant]

REACTIONS (5)
  - CHOLELITHIASIS [None]
  - GALLBLADDER DISORDER [None]
  - INJURY [None]
  - BILE DUCT STONE [None]
  - EMOTIONAL DISTRESS [None]
